FAERS Safety Report 10645087 (Version 1)
Quarter: 2014Q4

REPORT INFORMATION
  Report Type: Report from Study
  Country: FR (occurrence: FR)
  Receive Date: 20141211
  Receipt Date: 20141211
  Transmission Date: 20150529
  Serious: Yes (Other)
  Sender: FDA-Public Use
  Company Number: FR-BIOGENIDEC-2014BI127346

PATIENT
  Age: 37 Year
  Sex: Female

DRUGS (2)
  1. DEROXAT [Concomitant]
     Active Substance: PAROXETINE HYDROCHLORIDE
  2. TYSABRI [Suspect]
     Active Substance: NATALIZUMAB
     Indication: MULTIPLE SCLEROSIS
     Route: 042
     Dates: start: 20090417, end: 20130802

REACTIONS (1)
  - Prolonged labour [Unknown]

NARRATIVE: CASE EVENT DATE: 20140407
